FAERS Safety Report 5810105-6 (Version None)
Quarter: 2008Q3

REPORT INFORMATION
  Report Type: 
  Country: None (occurrence: None)
  Receive Date: 20080715
  Receipt Date: 20070802
  Transmission Date: 20090109
  Serious: No
  Sender: FDA-Public Use
  Company Number: A0648064A

PATIENT
  Sex: Female

DRUGS (4)
  1. IMITREX [Suspect]
     Indication: MIGRAINE
     Route: 048
  2. IMITREX [Suspect]
     Dosage: 25MG VARIABLE DOSE
     Route: 048
     Dates: start: 20010101
  3. THYROID MEDICATION [Concomitant]
  4. UNKNOWN MEDICATION [Concomitant]

REACTIONS (3)
  - ADVERSE EVENT [None]
  - CHEST DISCOMFORT [None]
  - PALPITATIONS [None]
